FAERS Safety Report 11575771 (Version 1)
Quarter: 2015Q3

REPORT INFORMATION
  Report Type: Spontaneous
  Country: GB (occurrence: GB)
  Receive Date: 20150930
  Receipt Date: 20150930
  Transmission Date: 20151125
  Serious: Yes (Other)
  Sender: FDA-Public Use
  Company Number: GB-APOTEX-2015AP013184

PATIENT
  Age: 45 Year
  Sex: Male

DRUGS (2)
  1. CLONAZEPAM. [Suspect]
     Active Substance: CLONAZEPAM
     Indication: SLEEP DISORDER THERAPY
     Dosage: UNK
     Route: 065
     Dates: end: 2009
  2. PAXIL [Suspect]
     Active Substance: PAROXETINE HYDROCHLORIDE
     Indication: DEPRESSION
     Dosage: UNK
     Route: 065
     Dates: start: 1995, end: 2002

REACTIONS (13)
  - Bradyphrenia [Unknown]
  - Dependence [Recovering/Resolving]
  - Insomnia [Recovering/Resolving]
  - Withdrawal syndrome [Recovering/Resolving]
  - Agitation [Not Recovered/Not Resolved]
  - Dizziness [Recovering/Resolving]
  - Cerebral disorder [Recovering/Resolving]
  - Fatigue [Recovering/Resolving]
  - Burning sensation [Unknown]
  - Tinnitus [Recovering/Resolving]
  - Memory impairment [Recovering/Resolving]
  - Anxiety [Recovering/Resolving]
  - Paraesthesia [Not Recovered/Not Resolved]
